FAERS Safety Report 6756935-8 (Version None)
Quarter: 2010Q2

REPORT INFORMATION
  Report Type: 
  Country: None (occurrence: None)
  Receive Date: 20100603
  Receipt Date: 20100603
  Transmission Date: 20101027
  Serious: Yes (Hospitalization)
  Sender: FDA-Public Use
  Company Number: None

PATIENT
  Age: 47 Year
  Sex: Male
  Weight: 80.45 kg

DRUGS (2)
  1. GABAPENTIN [Suspect]
     Dosage: 300 MG TID PO
     Route: 048
     Dates: start: 20100118
  2. AMITRIPTYLINE [Suspect]
     Dosage: 75 MG EVERY DAY PO
     Route: 048
     Dates: start: 20100101

REACTIONS (3)
  - BACTERAEMIA [None]
  - CONFUSIONAL STATE [None]
  - MENTAL STATUS CHANGES [None]
